FAERS Safety Report 7811879-5 (Version None)
Quarter: 2011Q4

REPORT INFORMATION
  Report Type: 
  Country: None (occurrence: None)
  Receive Date: 20111013
  Receipt Date: 20111003
  Transmission Date: 20120403
  Serious: Yes (Other)
  Sender: FDA-Public Use
  Company Number: PHHY2011SI87656

PATIENT
  Age: 53 Year
  Sex: Male

DRUGS (6)
  1. ALISKIREN [Suspect]
     Indication: HYPERTENSION
     Dosage: 150 MG,
     Dates: start: 20100916
  2. GLUCOVANCE [Concomitant]
     Indication: TYPE 2 DIABETES MELLITUS
     Dosage: 5/500 MG, BID
  3. BYETTA [Concomitant]
     Indication: TYPE 2 DIABETES MELLITUS
     Dosage: 10 MG, BID
  4. GLUCOBAY [Concomitant]
     Indication: TYPE 2 DIABETES MELLITUS
     Dosage: 100 MG, QD
  5. ASPIRIN [Concomitant]
     Dosage: 100 MG, QD
  6. PRENESSA [Concomitant]
     Dosage: 8 MG, QD
     Dates: start: 20110615

REACTIONS (3)
  - BLOOD GLUCOSE INCREASED [None]
  - GLYCOSYLATED HAEMOGLOBIN INCREASED [None]
  - URINE ALBUMIN/CREATININE RATIO INCREASED [None]
